FAERS Safety Report 7883842-X (Version None)
Quarter: 2011Q4

REPORT INFORMATION
  Report Type: 
  Country: None (occurrence: None)
  Receive Date: 20111102
  Receipt Date: 20111020
  Transmission Date: 20120403
  Serious: Yes (Other)
  Sender: FDA-Public Use
  Company Number: US-ELI_LILLY_AND_COMPANY-US201110006219

PATIENT
  Age: 62 Year
  Sex: Female

DRUGS (1)
  1. CYMBALTA [Suspect]
     Indication: MUSCULOSKELETAL PAIN
     Dosage: 60 MG, UNK

REACTIONS (2)
  - SELF INJURIOUS BEHAVIOUR [None]
  - DEPRESSION [None]
